FAERS Safety Report 9559607 (Version 3)
Quarter: 2014Q1

REPORT INFORMATION
  Report Type: Report from Study
  Country: NL (occurrence: NL)
  Receive Date: 20130927
  Receipt Date: 20140206
  Transmission Date: 20141002
  Serious: Yes (Hospitalization)
  Sender: FDA-Public Use
  Company Number: NL-ELI_LILLY_AND_COMPANY-NL201309004639

PATIENT
  Age: 81 Year
  Sex: Male
  Weight: 62 kg

DRUGS (16)
  1. NECITUMUMAB (11F8) (LY3012211) [Suspect]
     Indication: NON-SMALL CELL LUNG CANCER
     Dosage: 800 MG, CYCLICAL
     Route: 042
     Dates: start: 20130702, end: 20130820
  2. NECITUMUMAB (11F8) (LY3012211) [Suspect]
     Dosage: 600 MG, CYCLICAL
     Route: 042
     Dates: start: 20130910
  3. GEMCITABINE HYDROCHLORIDE [Suspect]
     Indication: NON-SMALL CELL LUNG CANCER
     Dosage: 1250 MG/M2, CYCLICAL
     Route: 042
     Dates: start: 20130702, end: 20130820
  4. CISPLATIN [Suspect]
     Indication: NON-SMALL CELL LUNG CANCER
     Dosage: 75 MG/M2, CYCLICAL
     Route: 042
     Dates: start: 20130702, end: 20130813
  5. PARACETAMOL+CODEIN [Concomitant]
     Indication: COUGH
     Dosage: UNK
     Dates: start: 20130527
  6. SOTALOL [Concomitant]
     Indication: HYPERTENSION
     Dosage: UNK
     Dates: start: 201305
  7. SOTALOL [Concomitant]
     Indication: CORONARY ARTERY BYPASS
  8. NEXIUM                             /01479302/ [Concomitant]
     Indication: PROPHYLAXIS
     Dosage: UNK
     Dates: start: 2009
  9. SALOFALK                           /00000301/ [Concomitant]
     Indication: COLITIS ULCERATIVE
     Dosage: UNK
     Dates: start: 2000
  10. AMLODIPINE [Concomitant]
     Indication: PROPHYLAXIS
     Dosage: UNK
     Dates: start: 2009
  11. PERINDOPRIL [Concomitant]
     Indication: PROPHYLAXIS
     Dosage: UNK
     Dates: start: 2009
  12. CRESTOR [Concomitant]
     Indication: PROPHYLAXIS
     Dosage: UNK
     Dates: start: 2009
  13. ARANESP [Concomitant]
     Indication: ANAEMIA
     Dosage: UNK
     Dates: start: 20130722, end: 20130830
  14. DORMICUM                           /00036201/ [Concomitant]
     Indication: INSOMNIA
     Dosage: UNK
     Dates: start: 20130730
  15. PRIMPERAN [Concomitant]
     Indication: NAUSEA
     Dosage: UNK
     Dates: start: 20130702
  16. PHENPROCOUMON [Concomitant]
     Indication: PROPHYLAXIS
     Dosage: UNK
     Dates: start: 2009, end: 20130829

REACTIONS (1)
  - Haematuria [Recovered/Resolved]
